FAERS Safety Report 15867500 (Version 1)
Quarter: 2019Q1

REPORT INFORMATION
  Report Type: Spontaneous
  Country: US (occurrence: US)
  Receive Date: 20190125
  Receipt Date: 20190125
  Transmission Date: 20190417
  Serious: Yes (Hospitalization)
  Sender: FDA-Public Use
  Company Number: US-TEVA-2019-US-1001124

PATIENT
  Sex: Female

DRUGS (1)
  1. ALENDRONATE SODIUM. [Suspect]
     Active Substance: ALENDRONATE SODIUM
     Indication: BONE DISORDER
     Dates: start: 20181029, end: 20190109

REACTIONS (5)
  - Chest pain [Unknown]
  - Insomnia [Unknown]
  - Feeling abnormal [Unknown]
  - Fall [Unknown]
  - Arthralgia [Not Recovered/Not Resolved]
